FAERS Safety Report 4847254-5 (Version None)
Quarter: 2005Q4

REPORT INFORMATION
  Report Type: 
  Country: None (occurrence: None)
  Receive Date: 20051207
  Receipt Date: 20051129
  Transmission Date: 20060501
  Serious: Yes (Hospitalization)
  Sender: FDA-Public Use
  Company Number: 425366

PATIENT
  Age: 55 Year

DRUGS (9)
  1. CARVEDILOL [Suspect]
     Indication: MYOCARDIAL INFARCTION
     Route: 048
     Dates: start: 20040401
  2. PANALDINE [Concomitant]
  3. PARIET [Concomitant]
  4. MUCOSTA [Concomitant]
  5. FUROSEMIDE [Concomitant]
  6. WARFARIN SODIUM [Concomitant]
  7. ALDACTONE [Concomitant]
  8. FERROMIA [Concomitant]
  9. ASPIRIN [Concomitant]

REACTIONS (3)
  - CARDIAC FAILURE [None]
  - CONDITION AGGRAVATED [None]
  - GLYCOSYLATED HAEMOGLOBIN INCREASED [None]
